FAERS Safety Report 9209815 (Version 2)
Quarter: 2013Q3

REPORT INFORMATION
  Report Type: Spontaneous
  Country: US (occurrence: US)
  Receive Date: 20130404
  Receipt Date: 20130711
  Transmission Date: 20140515
  Serious: Yes (Other)
  Sender: FDA-Public Use
  Company Number: US-ASTELLAS-2013US000371

PATIENT
  Age: 76 Year
  Sex: Male

DRUGS (1)
  1. MYRBETRIQ [Suspect]
     Indication: INCONTINENCE
     Dosage: 25 MG, UID/QD
     Route: 048
     Dates: start: 20121204, end: 20121209

REACTIONS (4)
  - Drug ineffective [Unknown]
  - Urinary retention [Unknown]
  - Joint swelling [Not Recovered/Not Resolved]
  - Urinary incontinence [Not Recovered/Not Resolved]
